FAERS Safety Report 6020891-0 (Version None)
Quarter: 2008Q4

REPORT INFORMATION
  Report Type: 
  Country: None (occurrence: None)
  Receive Date: 20081229
  Receipt Date: 20081217
  Transmission Date: 20090506
  Serious: Yes (Hospitalization)
  Sender: FDA-Public Use
  Company Number: JP-ABBOTT-08P-087-0494731-00

PATIENT
  Age: 80 Year
  Sex: Male

DRUGS (8)
  1. LEUPROLIDE ACETATE [Suspect]
     Indication: PROSTATE CANCER STAGE IV
     Route: 058
     Dates: start: 20060607
  2. CASODEX [Concomitant]
     Indication: PROSTATE CANCER STAGE IV
     Route: 048
     Dates: end: 20080116
  3. BISOLVON [Concomitant]
     Indication: BRONCHIECTASIS
     Route: 048
     Dates: end: 20080116
  4. MUCOSOLVAN [Concomitant]
     Indication: BRONCHIECTASIS
     Route: 048
     Dates: end: 20080116
  5. MUCODYNE [Concomitant]
     Indication: BRONCHIECTASIS
     Route: 048
     Dates: end: 20080116
  6. THEO-DUR [Concomitant]
     Indication: BRONCHIECTASIS
     Route: 048
     Dates: end: 20080116
  7. NORVASC [Concomitant]
     Indication: HYPERTENSION
     Route: 048
     Dates: end: 20080116
  8. HARNAL D [Concomitant]
     Indication: BENIGN PROSTATIC HYPERPLASIA
     Route: 048
     Dates: end: 20080116

REACTIONS (5)
  - GASTRIC CANCER [None]
  - ILEUS [None]
  - MECHANICAL ILEUS [None]
  - PYELONEPHRITIS ACUTE [None]
  - SEPSIS [None]
